FAERS Safety Report 7306048-1 (Version None)
Quarter: 2011Q1

REPORT INFORMATION
  Report Type: 
  Country: None (occurrence: None)
  Receive Date: 20110222
  Receipt Date: 20110217
  Transmission Date: 20110831
  Serious: Yes (Other)
  Sender: FDA-Public Use
  Company Number: JP-PFIZER INC-2011034741

PATIENT
  Age: 81 Year
  Sex: Female

DRUGS (3)
  1. SULPERAZON [Suspect]
     Dosage: UNK
     Dates: start: 20110109, end: 20110122
  2. FIRSTCIN [Concomitant]
     Dosage: UNK
     Dates: start: 20101204, end: 20101216
  3. CEFTAZIDIME [Concomitant]
     Dosage: UNK
     Dates: start: 20110101, end: 20110108

REACTIONS (1)
  - GLOMERULONEPHRITIS RAPIDLY PROGRESSIVE [None]
